FAERS Safety Report 17648628 (Version 2)
Quarter: 2020Q4

REPORT INFORMATION
  Report Type: Spontaneous
  Country: US (occurrence: US)
  Receive Date: 20200408
  Receipt Date: 20201223
  Transmission Date: 20210113
  Serious: Yes (Other)
  Sender: FDA-Public Use
  Company Number: US-TEVA-2020-US-1219578

PATIENT
  Age: 32 Year
  Sex: Female

DRUGS (6)
  1. ZANTAC [Concomitant]
     Active Substance: RANITIDINE HYDROCHLORIDE
  2. ANGELIQ [Concomitant]
     Active Substance: DROSPIRENONE\ESTRADIOL
  3. LIALDA [Concomitant]
     Active Substance: MESALAMINE
  4. TRAMADOL. [Suspect]
     Active Substance: TRAMADOL
     Indication: PAIN
     Route: 065
  5. DIAZEPAM. [Concomitant]
     Active Substance: DIAZEPAM
  6. NORCO [Concomitant]
     Active Substance: ACETAMINOPHEN\HYDROCODONE BITARTRATE
     Dosage: TAKE ONLY 1/4 OR 1/3 OF 10 MG

REACTIONS (12)
  - Pain [Unknown]
  - Irritability [Unknown]
  - Drug dependence [Unknown]
  - Personality change [Unknown]
  - Depression [Unknown]
  - Red blood cell count decreased [Unknown]
  - Visual impairment [Unknown]
  - Anger [Unknown]
  - Pain in extremity [Unknown]
  - Gait inability [Unknown]
  - Amnesia [Unknown]
  - Haemoglobin increased [Unknown]

NARRATIVE: CASE EVENT DATE: 1995
